FAERS Safety Report 4966957-5 (Version None)
Quarter: 2006Q2

REPORT INFORMATION
  Report Type: 
  Country: None (occurrence: None)
  Receive Date: 20060403
  Receipt Date: 20060316
  Transmission Date: 20061013
  Serious: Yes (Other)
  Sender: FDA-Public Use
  Company Number: TRP_0733_2006

PATIENT
  Age: 50 Year
  Sex: Male

DRUGS (3)
  1. RIBASPHERE [Suspect]
     Indication: HEPATITIS C
     Dosage: DF PO
     Route: 048
     Dates: start: 20051223
  2. PEG-INTRON [Suspect]
     Indication: HEPATITIS C
     Dosage: DF SC
     Route: 058
     Dates: start: 20051223
  3. NEXIUM [Concomitant]

REACTIONS (3)
  - ANXIETY [None]
  - ASCITES [None]
  - TACHYCARDIA [None]
